FAERS Safety Report 10911383 (Version 1)
Quarter: 2015Q1

REPORT INFORMATION
  Report Type: Spontaneous
  Country: DZ (occurrence: DZ)
  Receive Date: 20150313
  Receipt Date: 20150313
  Transmission Date: 20150721
  Serious: Yes (Hospitalization)
  Sender: FDA-Public Use
  Company Number: DZ-ROCHE-1550404

PATIENT
  Age: 59 Year
  Sex: Female

DRUGS (1)
  1. ALTEPLASE [Suspect]
     Active Substance: ALTEPLASE
     Indication: THROMBOSIS IN DEVICE
     Route: 065

REACTIONS (2)
  - Respiratory arrest [Unknown]
  - Cerebrovascular accident [Unknown]
